FAERS Safety Report 7484400-1 (Version None)
Quarter: 2011Q2

REPORT INFORMATION
  Report Type: 
  Country: None (occurrence: None)
  Receive Date: 20110517
  Receipt Date: 20110506
  Transmission Date: 20111010
  Serious: Yes (Hospitalization, Other)
  Sender: FDA-Public Use
  Company Number: US-BAXTER-2011BH011935

PATIENT
  Age: 76 Year
  Sex: Male

DRUGS (3)
  1. DIANEAL [Suspect]
     Route: 033
     Dates: end: 20110505
  2. DIANEAL [Suspect]
     Indication: PERITONEAL DIALYSIS
     Route: 033
     Dates: start: 20100101, end: 20110505
  3. DIANEAL [Suspect]
     Indication: PERITONEAL DIALYSIS
     Route: 033
     Dates: start: 20100101, end: 20110505

REACTIONS (9)
  - DIARRHOEA [None]
  - NAUSEA [None]
  - SYNCOPE [None]
  - PERITONITIS [None]
  - THROMBOCYTOPENIA [None]
  - MALAISE [None]
  - ORTHOSTATIC HYPOTENSION [None]
  - FOLATE DEFICIENCY [None]
  - ANAEMIA [None]
